FAERS Safety Report 18039609 (Version 1)
Quarter: 2020Q3

REPORT INFORMATION
  Report Type: Spontaneous
  Country: FR (occurrence: FR)
  Receive Date: 20200717
  Receipt Date: 20200717
  Transmission Date: 20201103
  Serious: Yes (Hospitalization)
  Sender: FDA-Public Use
  Company Number: NVSC2020FR200956

PATIENT
  Age: 32 Year
  Sex: Female
  Weight: 54 kg

DRUGS (1)
  1. GILENYA [Suspect]
     Active Substance: FINGOLIMOD HYDROCHLORIDE
     Indication: MULTIPLE SCLEROSIS
     Dosage: 0.5 MG, QD
     Route: 048
     Dates: start: 20191030, end: 20200528

REACTIONS (3)
  - Epistaxis [Recovered/Resolved]
  - Thrombocytopenia [Recovered/Resolved]
  - Immune thrombocytopenia [Recovering/Resolving]

NARRATIVE: CASE EVENT DATE: 20200525
